FAERS Safety Report 6120037-4 (Version None)
Quarter: 2009Q1

REPORT INFORMATION
  Report Type: 
  Country: None (occurrence: None)
  Receive Date: 20090316
  Receipt Date: 20090306
  Transmission Date: 20090719
  Serious: Yes (Hospitalization)
  Sender: FDA-Public Use
  Company Number: FR-ABBOTT-09P-056-0500653-00

PATIENT
  Sex: Female

DRUGS (12)
  1. LIPANTHYL [Suspect]
     Indication: HYPERCHOLESTEROLAEMIA
     Route: 048
     Dates: start: 20060301, end: 20061201
  2. CRESTOR [Suspect]
     Indication: HYPERCHOLESTEROLAEMIA
     Route: 048
     Dates: start: 20070101, end: 20070601
  3. FRACTAL [Suspect]
     Indication: HYPERCHOLESTEROLAEMIA
     Route: 048
     Dates: start: 20020201, end: 20031201
  4. LESCOL [Suspect]
     Indication: HYPERCHOLESTEROLAEMIA
     Route: 048
     Dates: start: 20031201, end: 20041101
  5. ZOCOR [Suspect]
     Indication: HYPERCHOLESTEROLAEMIA
     Route: 048
     Dates: start: 20041201, end: 20051001
  6. EZETROL [Suspect]
     Indication: HYPERCHOLESTEROLAEMIA
     Route: 048
     Dates: start: 20051101, end: 20060301
  7. QUESTRAN [Suspect]
     Indication: HYPERCHOLESTEROLAEMIA
     Dosage: 4 G
     Route: 048
     Dates: start: 20070701, end: 20080501
  8. STATICONCEPT [Suspect]
     Indication: HYPERCHOLESTEROLAEMIA
     Route: 048
  9. IBANDRONIC ACID [Concomitant]
     Indication: OSTEOPOROSIS
     Route: 048
  10. HOMEOPATHY [Concomitant]
     Indication: DRUG USE FOR UNKNOWN INDICATION
     Route: 048
  11. KETEK [Concomitant]
     Indication: DRUG USE FOR UNKNOWN INDICATION
  12. CACIT D3 [Concomitant]
     Indication: DRUG USE FOR UNKNOWN INDICATION

REACTIONS (7)
  - APHONIA [None]
  - C-REACTIVE PROTEIN INCREASED [None]
  - CHEST PAIN [None]
  - COUGH [None]
  - INTERSTITIAL LUNG DISEASE [None]
  - ORGANISING PNEUMONIA [None]
  - PYREXIA [None]
